FAERS Safety Report 9062589 (Version 1)
Quarter: 2013Q1

REPORT INFORMATION
  Report Type: Report from Study
  Country: DE (occurrence: DE)
  Receive Date: 20130213
  Receipt Date: 20130213
  Transmission Date: 20140127
  Serious: Yes (Hospitalization)
  Sender: FDA-Public Use
  Company Number: DE-BRISTOL-MYERS SQUIBB COMPANY-16524571

PATIENT
  Age: 76 Year
  Sex: Male
  Weight: 84 kg

DRUGS (11)
  1. ERBITUX SOLN FOR INF [Suspect]
     Indication: COLORECTAL CANCER METASTATIC
     Dosage: 400MG/M2:25JAN12,?250MG/M2:01FEB-07MAR12, 21MAR-28MAR12?INT ON 14MAR12?26SEP2012:D^CED
     Route: 042
     Dates: start: 20120125
  2. 5-FLUOROURACIL [Concomitant]
     Indication: CHEMOTHERAPY
     Dosage: 2300MG/M2 AGGREGATED
     Route: 042
     Dates: start: 20120125, end: 20120509
  3. OXALIPLATIN [Concomitant]
     Indication: CHEMOTHERAPY
     Route: 042
     Dates: start: 20120125, end: 20120509
  4. CALCIUM FOLINATE [Concomitant]
     Indication: CHEMOTHERAPY
     Dosage: 02MAY12:2300MG/M2,99MG/M2,999MG/M2 WEEKLY
     Route: 042
     Dates: start: 20120125, end: 20120509
  5. ONDANSETRON [Concomitant]
     Indication: PREMEDICATION
     Dosage: 25JAN12-25JAN12?1FEB12-1FEB12
     Dates: start: 20120125, end: 20120201
  6. CRANOC [Concomitant]
     Route: 048
  7. ACETYLSALICYLIC ACID [Concomitant]
     Route: 048
  8. LISODURA [Concomitant]
     Route: 048
  9. AMLODIPINE [Concomitant]
     Indication: HYPERTENSION
     Route: 048
     Dates: start: 20110501
  10. CLOPIDOGREL BISULFATE [Concomitant]
     Indication: ANTICOAGULANT THERAPY
     Route: 048
     Dates: start: 20110501
  11. METFORMIN [Concomitant]
     Indication: TYPE 2 DIABETES MELLITUS
     Route: 048
     Dates: start: 20100512

REACTIONS (3)
  - General physical health deterioration [Recovered/Resolved]
  - Dehydration [Recovered/Resolved]
  - Hyponatraemia [Recovered/Resolved]
